FAERS Safety Report 4550109-7 (Version None)
Quarter: 2005Q1

REPORT INFORMATION
  Report Type: 
  Country: None (occurrence: None)
  Receive Date: 20050107
  Receipt Date: 20041228
  Transmission Date: 20050727
  Serious: No
  Sender: FDA-Public Use
  Company Number: 211446

PATIENT
  Age: 13 Year
  Sex: Male
  Weight: 36.6 kg

DRUGS (1)
  1. NUTROPIN AQ [Suspect]
     Indication: GROWTH HORMONE DEFICIENCY
     Dosage: 2.8 MG, QD
     Dates: start: 19990713

REACTIONS (1)
  - FIBROMA [None]
